FAERS Safety Report 8073778-6 (Version None)
Quarter: 2012Q1

REPORT INFORMATION
  Report Type: 
  Country: None (occurrence: None)
  Receive Date: 20120126
  Receipt Date: 20120119
  Transmission Date: 20120608
  Serious: Yes (Other)
  Sender: FDA-Public Use
  Company Number: GB-ROCHE-1028805

PATIENT
  Sex: Female

DRUGS (1)
  1. AVASTIN [Suspect]
     Indication: MALIGNANT MELANOMA
     Dosage: LAST INFUSION RECEIVED PRIOR TO EVENT ON 06/OCT/2011 WITH TOTAL DOSE OF BEVACIZUMAB 62.5 MG
     Dates: start: 20111006

REACTIONS (2)
  - MATERNAL EXPOSURE DURING PREGNANCY [None]
  - ABORTION SPONTANEOUS [None]
